FAERS Safety Report 5291869-X (Version None)
Quarter: 2007Q2

REPORT INFORMATION
  Report Type: 
  Country: None (occurrence: None)
  Receive Date: 20070406
  Receipt Date: 20070406
  Transmission Date: 20071010
  Serious: Yes (Hospitalization)
  Sender: FDA-Public Use
  Company Number: None

PATIENT
  Age: 26 Year
  Sex: Male

DRUGS (3)
  1. VANCOMYCIN [Suspect]
     Dosage: VANCOMYCIN 250MG  TID  PO  THEN TAPER  PO
     Route: 048
  2. SACCHAROMYCES [Suspect]
     Dosage: 500 MG  DAILY  PO
     Route: 048
  3. METRONIDAZOLE [Suspect]

REACTIONS (2)
  - CLOSTRIDIUM DIFFICILE COLITIS [None]
  - NO THERAPEUTIC RESPONSE [None]
